FAERS Safety Report 4775093-2 (Version None)
Quarter: 2005Q3

REPORT INFORMATION
  Report Type: 
  Country: None (occurrence: None)
  Receive Date: 20050921
  Receipt Date: 20050915
  Transmission Date: 20060218
  Serious: Yes (Death, Hospitalization, Other)
  Sender: FDA-Public Use
  Company Number: US-ABBOTT-05P-163-0311093-00

PATIENT
  Sex: Female
  Weight: 74.002 kg

DRUGS (1)
  1. SYNTHROID [Suspect]
     Indication: HYPOTHYROIDISM
     Route: 048

REACTIONS (7)
  - ATRIAL FIBRILLATION [None]
  - HYPOTENSION [None]
  - PNEUMONIA [None]
  - PULMONARY OEDEMA [None]
  - RESPIRATORY RATE INCREASED [None]
  - SPINAL COLUMN STENOSIS [None]
  - UNRESPONSIVE TO VERBAL STIMULI [None]
